FAERS Safety Report 4898506-4 (Version None)
Quarter: 2006Q1

REPORT INFORMATION
  Report Type: 
  Country: None (occurrence: None)
  Receive Date: 20060202
  Receipt Date: 20060124
  Transmission Date: 20060701
  Serious: Yes (Death, Other)
  Sender: FDA-Public Use
  Company Number: US-JNJFOC-20051204561

PATIENT
  Age: 17 Year
  Sex: Female

DRUGS (5)
  1. REMICADE [Suspect]
     Route: 042
  2. REMICADE [Suspect]
     Indication: CROHN'S DISEASE
     Dosage: INTERVALS FROM 5 TO 8 WEEKS
     Route: 042
  3. MESALAMINE [Suspect]
     Indication: CROHN'S DISEASE
  4. 6MP [Suspect]
  5. 6MP [Suspect]
     Indication: CROHN'S DISEASE

REACTIONS (2)
  - SEPSIS [None]
  - T-CELL LYMPHOMA [None]
